FAERS Safety Report 19875793 (Version 1)
Quarter: 2021Q3

REPORT INFORMATION
  Report Type: Spontaneous
  Country: JP (occurrence: JP)
  Receive Date: 20210924
  Receipt Date: 20210924
  Transmission Date: 20211014
  Serious: Yes (Other)
  Sender: FDA-Public Use
  Company Number: JP-JNJFOC-20210936413

PATIENT
  Age: 60 Year
  Sex: Female

DRUGS (3)
  1. SIMPONI [Suspect]
     Active Substance: GOLIMUMAB
     Indication: RHEUMATOID ARTHRITIS
     Route: 058
     Dates: start: 201409, end: 2016
  2. SIMPONI [Suspect]
     Active Substance: GOLIMUMAB
     Route: 058
     Dates: start: 2017
  3. METHOTREXATE. [Concomitant]
     Active Substance: METHOTREXATE
     Dosage: DOSE UNKNOWN
     Dates: end: 2020

REACTIONS (4)
  - Inappropriate schedule of product administration [Unknown]
  - Atypical mycobacterial infection [Not Recovered/Not Resolved]
  - Inappropriate schedule of product administration [Unknown]
  - Off label use [Unknown]

NARRATIVE: CASE EVENT DATE: 2017
